FAERS Safety Report 6698969-8 (Version None)
Quarter: 2010Q2

REPORT INFORMATION
  Report Type: 
  Country: None (occurrence: None)
  Receive Date: 20100427
  Receipt Date: 20100416
  Transmission Date: 20101027
  Serious: Yes (Hospitalization)
  Sender: FDA-Public Use
  Company Number: B0647916A

PATIENT
  Sex: Male
  Weight: 76.5 kg

DRUGS (5)
  1. LAPATINIB [Suspect]
     Indication: GASTRIC CANCER
     Dosage: 1250MG PER DAY
     Route: 048
     Dates: start: 20100402
  2. OXALIPLATIN [Suspect]
     Indication: GASTRIC CANCER
     Dosage: 250MG PER DAY
     Route: 042
     Dates: start: 20100402
  3. XELODA [Suspect]
     Indication: GASTRIC CANCER
     Route: 048
     Dates: start: 20100402
  4. METOCLOPRAMIDE HYDROCHLORIDE [Concomitant]
     Indication: VOMITING
     Dosage: 20MG PER DAY
     Route: 048
     Dates: start: 20100406, end: 20100406
  5. DIPHENHYDRAMINE [Concomitant]
     Indication: VOMITING
     Dosage: 20MG PER DAY
     Route: 048
     Dates: start: 20100406

REACTIONS (2)
  - COMA [None]
  - HYPONATRAEMIA [None]
